FAERS Safety Report 5376166-6 (Version None)
Quarter: 2007Q3

REPORT INFORMATION
  Report Type: 
  Country: None (occurrence: None)
  Receive Date: 20070702
  Receipt Date: 20070618
  Transmission Date: 20080115
  Serious: Yes (Disabling)
  Sender: FDA-Public Use
  Company Number: FI-GENENTECH-240137

PATIENT
  Age: 63 Year
  Sex: Female

DRUGS (7)
  1. BEVACIZUMAB [Suspect]
     Indication: COLON CANCER
     Dosage: 292 MG, Q2W
     Route: 042
     Dates: start: 20061019
  2. THYROXIN [Concomitant]
     Indication: HYPOTHYROIDISM
     Dosage: 100 MG, QOD
     Dates: start: 19850101
  3. THYROXIN [Concomitant]
     Dosage: 150 MG, QOD
  4. OXALIPLATIN [Concomitant]
     Indication: COLON CANCER
     Dosage: 140 MG, Q2W
     Route: 042
     Dates: start: 20061019
  5. FLUOROURACIL [Concomitant]
     Indication: COLON CANCER
     Dosage: 495 MG, SINGLE
     Route: 042
     Dates: start: 20061019
  6. FLUOROURACIL [Concomitant]
     Dosage: 825 MG, Q2W
     Route: 042
     Dates: start: 20061019
  7. NITROFUR-C [Concomitant]
     Indication: DRUG USE FOR UNKNOWN INDICATION
     Dosage: UNK, UNK
     Dates: start: 20070307

REACTIONS (1)
  - HYPOTHYROIDISM [None]
